FAERS Safety Report 17390338 (Version 1)
Quarter: 2020Q1

REPORT INFORMATION
  Report Type: Spontaneous
  Country: US (occurrence: US)
  Receive Date: 20200207
  Receipt Date: 20200207
  Transmission Date: 20200409
  Serious: Yes (Other)
  Sender: FDA-Public Use
  Company Number: US-MYLANLABS-2020M1014508

PATIENT
  Sex: Female
  Weight: 7 kg

DRUGS (4)
  1. TOBI [Suspect]
     Active Substance: TOBRAMYCIN
     Dosage: UNK
     Dates: start: 20200129
  2. ALBUTEROL                          /00139501/ [Concomitant]
     Active Substance: ALBUTEROL
     Dosage: UNK
  3. PULMOZYME [Concomitant]
     Active Substance: DORNASE ALFA
     Dosage: UNK
  4. TOBI [Suspect]
     Active Substance: TOBRAMYCIN
     Indication: PSEUDOMONAS INFECTION
     Dosage: UNK
     Dates: start: 20191217, end: 20200112

REACTIONS (1)
  - Drug ineffective [Unknown]
